FAERS Safety Report 14166246 (Version 2)
Quarter: 2017Q4

REPORT INFORMATION
  Report Type: Spontaneous
  Country: FR (occurrence: FR)
  Receive Date: 20171107
  Receipt Date: 20171206
  Transmission Date: 20180321
  Serious: Yes (Hospitalization, Other)
  Sender: FDA-Public Use
  Company Number: FR-BEH-2017084847

PATIENT
  Age: 77 Year
  Sex: Female

DRUGS (3)
  1. PRIVIGEN [Suspect]
     Active Substance: HUMAN IMMUNOGLOBULIN G
     Dosage: UNK
     Route: 042
     Dates: start: 201701
  2. PRIVIGEN [Suspect]
     Active Substance: HUMAN IMMUNOGLOBULIN G
     Dosage: UNK
     Route: 042
     Dates: start: 201703
  3. PRIVIGEN [Suspect]
     Active Substance: HUMAN IMMUNOGLOBULIN G
     Indication: HYPOGAMMAGLOBULINAEMIA
     Dosage: 30 G, 1 IN 1 DAY
     Route: 042
     Dates: start: 20171005, end: 20171005

REACTIONS (6)
  - Respiratory distress [Recovered/Resolved]
  - Livedo reticularis [Recovered/Resolved]
  - Sputum discoloured [Recovering/Resolving]
  - Lower respiratory tract infection bacterial [Recovering/Resolving]
  - Productive cough [Recovering/Resolving]
  - Pneumococcal infection [Recovering/Resolving]

NARRATIVE: CASE EVENT DATE: 20171005
